FAERS Safety Report 15555990 (Version 2)
Quarter: 2019Q1

REPORT INFORMATION
  Report Type: Report from Study
  Country: JP (occurrence: JP)
  Receive Date: 20181026
  Receipt Date: 20190308
  Transmission Date: 20190417
  Serious: Yes (Other)
  Sender: FDA-Public Use
  Company Number: JP-JNJFOC-20181033701

PATIENT
  Age: 76 Year
  Sex: Male
  Weight: 67.9 kg

DRUGS (19)
  1. DEXAMETHASONE. [Suspect]
     Active Substance: DEXAMETHASONE
     Indication: PLASMA CELL MYELOMA
     Route: 065
     Dates: start: 20180131, end: 20180131
  2. LENALIDOMIDE [Suspect]
     Active Substance: LENALIDOMIDE
     Indication: PLASMA CELL MYELOMA
     Route: 048
     Dates: start: 20180110, end: 20180301
  3. KIPRES [Concomitant]
     Active Substance: MONTELUKAST SODIUM
     Route: 048
     Dates: start: 20180110
  4. VELCADE [Concomitant]
     Active Substance: BORTEZOMIB
     Indication: PLASMA CELL MYELOMA
  5. POLARAMINE [Concomitant]
     Active Substance: DEXCHLORPHENIRAMINE MALEATE
     Route: 041
     Dates: start: 20180110
  6. DECADRON [Concomitant]
     Active Substance: DEXAMETHASONE
     Route: 041
     Dates: start: 20180110
  7. SOLU-CORTEF [Concomitant]
     Active Substance: HYDROCORTISONE SODIUM SUCCINATE
     Indication: INFUSION RELATED REACTION
     Route: 041
     Dates: start: 20180110
  8. DEXAMETHASONE. [Suspect]
     Active Substance: DEXAMETHASONE
     Indication: PLASMA CELL MYELOMA
     Route: 065
     Dates: start: 20180223, end: 20180223
  9. DARZALEX [Suspect]
     Active Substance: DARATUMUMAB
     Indication: PLASMA CELL MYELOMA
     Route: 042
     Dates: start: 20180110, end: 20180110
  10. DEXAMETHASONE. [Suspect]
     Active Substance: DEXAMETHASONE
     Indication: PLASMA CELL MYELOMA
     Route: 065
     Dates: start: 20180117, end: 20180117
  11. ACELIO [Concomitant]
     Active Substance: ACETAMINOPHEN
     Indication: INFUSION RELATED REACTION
     Route: 041
     Dates: start: 20180110
  12. SEISHOKU [Concomitant]
     Active Substance: SODIUM CHLORIDE
     Indication: INFUSION RELATED REACTION
     Route: 041
     Dates: start: 20180110
  13. DARZALEX [Suspect]
     Active Substance: DARATUMUMAB
     Indication: PLASMA CELL MYELOMA
     Route: 042
     Dates: start: 20180117
  14. DEXAMETHASONE. [Suspect]
     Active Substance: DEXAMETHASONE
     Indication: PLASMA CELL MYELOMA
     Route: 065
     Dates: start: 20180110, end: 20180110
  15. DEXAMETHASONE. [Suspect]
     Active Substance: DEXAMETHASONE
     Indication: PLASMA CELL MYELOMA
     Route: 065
     Dates: start: 20180209, end: 20180209
  16. TAZOBACTAM SODIUM [Concomitant]
     Active Substance: TAZOBACTAM SODIUM
  17. DEXAMETHASONE. [Suspect]
     Active Substance: DEXAMETHASONE
     Indication: PLASMA CELL MYELOMA
     Route: 065
     Dates: start: 20180124, end: 20180124
  18. DEXAMETHASONE. [Suspect]
     Active Substance: DEXAMETHASONE
     Indication: PLASMA CELL MYELOMA
     Route: 065
     Dates: start: 20180216, end: 20180216
  19. CALONAL [Concomitant]
     Active Substance: ACETAMINOPHEN
     Route: 048
     Dates: start: 20180110

REACTIONS (12)
  - Azotaemia [Recovered/Resolved]
  - Hyponatraemia [Recovered/Resolved]
  - Chills [Recovered/Resolved]
  - Lymphocyte count decreased [Recovered/Resolved]
  - Anaemia [Not Recovered/Not Resolved]
  - Infusion related reaction [Recovered/Resolved]
  - Platelet count decreased [Recovered/Resolved]
  - Dyspnoea [Recovered/Resolved]
  - Blood lactate dehydrogenase increased [Recovering/Resolving]
  - Hypokalaemia [Recovered/Resolved]
  - Pneumonia [Recovered/Resolved]
  - Pyrexia [Recovered/Resolved]

NARRATIVE: CASE EVENT DATE: 20180110
